FAERS Safety Report 4763672-8 (Version None)
Quarter: 2005Q3

REPORT INFORMATION
  Report Type: 
  Country: None (occurrence: None)
  Receive Date: 20050901
  Receipt Date: 20050509
  Transmission Date: 20060218
  Serious: No
  Sender: FDA-Public Use
  Company Number: 200510451BWH

PATIENT
  Age: 60 Year
  Sex: Male
  Weight: 98.4306 kg

DRUGS (5)
  1. LEVITRA [Suspect]
     Indication: ERECTILE DYSFUNCTION
     Dosage: 20 MG TOTAL DAILY
  2. SUDAFED 12 HOUR [Suspect]
  3. LOTREL [Concomitant]
  4. WELLBUTRIN [Concomitant]
  5. LEXAPRON [Concomitant]

REACTIONS (2)
  - DRUG INTERACTION [None]
  - ERECTILE DYSFUNCTION [None]
